FAERS Safety Report 18954582 (Version 1)
Quarter: 2021Q1

REPORT INFORMATION
  Report Type: Spontaneous
  Country: US (occurrence: US)
  Receive Date: 20210301
  Receipt Date: 20210301
  Transmission Date: 20210420
  Serious: Yes (Other)
  Sender: FDA-Public Use
  Company Number: US-CURIUM-2003000217

PATIENT
  Age: 31 Year
  Sex: Male

DRUGS (1)
  1. TECHNESCAN HDP [Suspect]
     Active Substance: TECHNETIUM TC-99M OXIDRONATE
     Indication: BONE SCAN
     Route: 042
     Dates: start: 20030108, end: 20030108

REACTIONS (2)
  - Fall [Unknown]
  - Chest discomfort [Unknown]

NARRATIVE: CASE EVENT DATE: 20030108
